FAERS Safety Report 10019334 (Version 1)
Quarter: 2014Q1

REPORT INFORMATION
  Report Type: Spontaneous
  Country: CA (occurrence: CA)
  Receive Date: 20140318
  Receipt Date: 20140318
  Transmission Date: 20141002
  Serious: Yes (Hospitalization)
  Sender: FDA-Public Use
  Company Number: CA-B.I. PHARMACEUTICALS,INC./RIDGEFIELD-2014-BI-10788CN

PATIENT
  Age: 57 Year
  Sex: Male

DRUGS (5)
  1. SPIRIVA [Suspect]
     Indication: PRODUCT USED FOR UNKNOWN INDICATION
     Route: 065
  2. VENTOLIN [Suspect]
     Indication: PRODUCT USED FOR UNKNOWN INDICATION
     Route: 065
  3. ADVAIR [Suspect]
     Indication: PRODUCT USED FOR UNKNOWN INDICATION
     Route: 055
  4. ANTIDEPRESSANT [Concomitant]
     Indication: DEPRESSION
     Route: 065
  5. ANXIOLYTIC AGENTS [Concomitant]
     Indication: ANXIETY
     Route: 065

REACTIONS (1)
  - Dyspnoea [Not Recovered/Not Resolved]
